FAERS Safety Report 9468224 (Version 2)
Quarter: 2013Q3

REPORT INFORMATION
  Report Type: Spontaneous
  Country: US (occurrence: US)
  Receive Date: 20130821
  Receipt Date: 20130829
  Transmission Date: 20140515
  Serious: Yes (Hospitalization)
  Sender: FDA-Public Use
  Company Number: US-GILEAD-2013-0081660

PATIENT
  Sex: Female

DRUGS (3)
  1. LETAIRIS [Suspect]
     Indication: PULMONARY ARTERIAL HYPERTENSION
     Dosage: 5 MG, QD
     Dates: start: 20130720, end: 20130802
  2. LETAIRIS [Suspect]
     Indication: PULMONARY VENO-OCCLUSIVE DISEASE
  3. LASIX                              /00032601/ [Concomitant]
     Indication: FLUID RETENTION

REACTIONS (2)
  - Oedema [Unknown]
  - Dyspnoea [Unknown]
